FAERS Safety Report 24037348 (Version 1)
Quarter: 2024Q3

REPORT INFORMATION
  Report Type: Report from Study
  Country: BR (occurrence: BR)
  Receive Date: 20240702
  Receipt Date: 20240702
  Transmission Date: 20241016
  Serious: Yes (Hospitalization, Other)
  Sender: ABBVIE
  Company Number: BR-ABBVIE-5821106

PATIENT
  Age: 81 Year
  Sex: Male
  Weight: 78 kg

DRUGS (1)
  1. SKYRIZI [Suspect]
     Active Substance: RISANKIZUMAB-RZAA
     Indication: Psoriasis
     Dosage: FORM STRENGTH UNITS:75 MILLIGRAM
     Route: 058
     Dates: start: 20210611, end: 2022

REACTIONS (6)
  - Malaise [Recovered/Resolved]
  - Pruritus [Recovering/Resolving]
  - Nausea [Recovered/Resolved]
  - Platelet disorder [Unknown]
  - Coronary artery occlusion [Recovered/Resolved]
  - Feeling abnormal [Unknown]

NARRATIVE: CASE EVENT DATE: 20230501
